FAERS Safety Report 9365629 (Version 1)
Quarter: 2013Q2

REPORT INFORMATION
  Report Type: Spontaneous
  Country: US (occurrence: None)
  Receive Date: 20130624
  Receipt Date: 20130624
  Transmission Date: 20140414
  Serious: No
  Sender: FDA-Public Use
  Company Number: None

PATIENT
  Sex: Male

DRUGS (2)
  1. BALCLOFEN [Suspect]
     Indication: ROAD TRAFFIC ACCIDENT
     Dates: start: 20130530, end: 20130530
  2. BALCLOFEN [Suspect]
     Indication: PAIN
     Dates: start: 20130530, end: 20130530

REACTIONS (4)
  - Slow response to stimuli [None]
  - Cerebrovascular accident [None]
  - Haemodialysis [None]
  - Mental status changes [None]
